FAERS Safety Report 19984937 (Version 1)
Quarter: 2021Q4

REPORT INFORMATION
  Report Type: Spontaneous
  Country: AT (occurrence: AT)
  Receive Date: 20211021
  Receipt Date: 20211021
  Transmission Date: 20220304
  Serious: Yes (Death, Other)
  Sender: FDA-Public Use
  Company Number: AT-PFM-2021-10475

PATIENT
  Age: 52 Year
  Sex: Male

DRUGS (3)
  1. BRAFTOVI [Suspect]
     Active Substance: ENCORAFENIB
     Indication: Colon cancer metastatic
     Dosage: UNK
     Route: 065
     Dates: start: 202010
  2. MEKTOVI [Suspect]
     Active Substance: BINIMETINIB
     Indication: Colon cancer metastatic
     Dosage: UNK
     Route: 065
     Dates: start: 202010
  3. CETUXIMAB [Suspect]
     Active Substance: CETUXIMAB
     Indication: Colon cancer metastatic
     Dosage: UNK
     Route: 065
     Dates: start: 202010

REACTIONS (3)
  - Death [Fatal]
  - Dermatitis acneiform [Unknown]
  - Off label use [Unknown]

NARRATIVE: CASE EVENT DATE: 20210101
